FAERS Safety Report 7546374-4 (Version None)
Quarter: 2011Q2

REPORT INFORMATION
  Report Type: 
  Country: None (occurrence: None)
  Receive Date: 20110614
  Receipt Date: 20110610
  Transmission Date: 20111010
  Serious: Yes (Other)
  Sender: FDA-Public Use
  Company Number: US-PFIZER INC-2011127689

PATIENT
  Sex: Male

DRUGS (2)
  1. IBUPROFEN [Suspect]
     Dosage: 200 MG, UNK
     Route: 048
  2. IBUPROFEN [Suspect]
     Dosage: UNK
     Route: 048

REACTIONS (2)
  - PHARYNGEAL OEDEMA [None]
  - URTICARIA [None]
